FAERS Safety Report 7032870-5 (Version None)
Quarter: 2010Q4

REPORT INFORMATION
  Report Type: 
  Country: None (occurrence: None)
  Receive Date: 20101007
  Receipt Date: 20100927
  Transmission Date: 20110411
  Serious: Yes (Hospitalization)
  Sender: FDA-Public Use
  Company Number: DE-ROCHE-730639

PATIENT
  Sex: Female
  Weight: 77 kg

DRUGS (4)
  1. BEVACIZUMAB [Suspect]
     Route: 042
     Dates: start: 20100901
  2. TAXOTERE [Suspect]
     Route: 042
     Dates: start: 20100901
  3. DEXAMETHASONE [Suspect]
     Indication: PRODUCT USED FOR UNKNOWN INDICATION
     Route: 042
     Dates: start: 20100901
  4. ONDANSETRON [Suspect]
     Indication: PRODUCT USED FOR UNKNOWN INDICATION
     Route: 042
     Dates: start: 20100901

REACTIONS (5)
  - CARDIOVASCULAR DISORDER [None]
  - DIZZINESS [None]
  - HEADACHE [None]
  - NAUSEA [None]
  - VOMITING [None]
